FAERS Safety Report 7896958-9 (Version None)
Quarter: 2011Q4

REPORT INFORMATION
  Report Type: 
  Country: None (occurrence: None)
  Receive Date: 20111107
  Receipt Date: 20111024
  Transmission Date: 20120403
  Serious: Yes (Hospitalization, Other)
  Sender: FDA-Public Use
  Company Number: GB-RANBAXY-2011RR-49601

PATIENT
  Age: 43 Year
  Sex: Male

DRUGS (4)
  1. LAMOTRIGINE [Concomitant]
     Dosage: 100 MG/DAY
     Route: 065
  2. DEPAKOTE [Suspect]
     Indication: EPILEPSY
     Dosage: UNK
     Route: 048
  3. LAMOTRIGINE [Concomitant]
     Indication: CONVERSION DISORDER
     Dosage: 25 MG, QD
     Route: 065
  4. IBUPROFEN [Suspect]
     Indication: PRODUCT USED FOR UNKNOWN INDICATION
     Dosage: UNK
     Route: 048

REACTIONS (9)
  - RESPIRATORY ALKALOSIS [None]
  - METABOLIC ACIDOSIS [None]
  - HYPOCALCAEMIA [None]
  - BLOOD OSMOLARITY INCREASED [None]
  - OVERDOSE [None]
  - THROMBOCYTOPENIA [None]
  - HYPERNATRAEMIA [None]
  - HYPERAMMONAEMIC ENCEPHALOPATHY [None]
  - COMA [None]
